FAERS Safety Report 9473802 (Version 2)
Quarter: 2013Q4

REPORT INFORMATION
  Report Type: Spontaneous
  Country: US (occurrence: US)
  Receive Date: 20130823
  Receipt Date: 20131015
  Transmission Date: 20140711
  Serious: Yes (Other)
  Sender: FDA-Public Use
  Company Number: US-TEVA-427968USA

PATIENT
  Age: 28 Year
  Sex: Female
  Weight: 101.7 kg

DRUGS (1)
  1. PARAGARD 380A [Suspect]
     Indication: CONTRACEPTION
     Route: 015
     Dates: start: 20130701, end: 20130723

REACTIONS (3)
  - Device dislocation [Recovered/Resolved]
  - Haemorrhage [Unknown]
  - Muscle spasms [Unknown]
